FAERS Safety Report 5371406-1 (Version None)
Quarter: 2007Q2

REPORT INFORMATION
  Report Type: 
  Country: None (occurrence: None)
  Receive Date: 20070615
  Receipt Date: 20061218
  Transmission Date: 20071010
  Serious: Yes (Other)
  Sender: FDA-Public Use
  Company Number: 200615344US

PATIENT
  Age: 56 Year
  Sex: Female
  Weight: 54 kg

DRUGS (5)
  1. LANTUS [Suspect]
     Indication: DIABETES MELLITUS INSULIN-DEPENDENT
     Dosage: 20 U QD
     Dates: start: 20060501, end: 20061101
  2. LANTUS [Suspect]
     Indication: DIABETES MELLITUS INSULIN-DEPENDENT
     Dosage: 15 U QD
     Dates: start: 20061101, end: 20061215
  3. ACCUPRIL [Concomitant]
  4. ATORVASTATIN CALCIUM (LIPITOR) [Concomitant]
  5. SYNTHROID [Concomitant]

REACTIONS (4)
  - BELLIGERENCE [None]
  - BLOOD GLUCOSE DECREASED [None]
  - FEELING ABNORMAL [None]
  - HYPOGLYCAEMIA [None]
